FAERS Safety Report 4291164-1 (Version None)
Quarter: 2004Q1

REPORT INFORMATION
  Report Type: 
  Country: None (occurrence: None)
  Receive Date: 20040211
  Receipt Date: 20040205
  Transmission Date: 20041129
  Serious: Yes (Other)
  Sender: FDA-Public Use
  Company Number: 200410279JP

PATIENT
  Age: 74 Year
  Sex: Male

DRUGS (2)
  1. LASIX [Suspect]
     Route: 048
  2. ALLOPURINOL [Suspect]

REACTIONS (6)
  - DRUG ERUPTION [None]
  - DRUG HYPERSENSITIVITY [None]
  - LIVER DISORDER [None]
  - PYREXIA [None]
  - RENAL FAILURE [None]
  - WHITE BLOOD CELL COUNT INCREASED [None]
